FAERS Safety Report 5120269-8 (Version None)
Quarter: 2006Q3

REPORT INFORMATION
  Report Type: 
  Country: None (occurrence: None)
  Receive Date: 20060928
  Receipt Date: 20060915
  Transmission Date: 20061208
  Serious: Yes (Other)
  Sender: FDA-Public Use
  Company Number: 2006113078

PATIENT
  Sex: Female

DRUGS (5)
  1. GABAPENTIN [Suspect]
     Dosage: 200 MG (100 MG, 2 IN 1 D)
  2. LYRICA [Suspect]
     Dosage: 150 MG (75 MG, 2 IN 1 D), ORAL
     Route: 048
     Dates: start: 20060830
  3. SIMVASTATIN [Concomitant]
  4. OXYBUTYNIN CHLORIDE [Concomitant]
  5. BACLOFEN [Concomitant]

REACTIONS (2)
  - DRUG INEFFECTIVE [None]
  - JAUNDICE [None]
